FAERS Safety Report 8942489 (Version 1)
Quarter: 2012Q4

REPORT INFORMATION
  Report Type: 
  Country: US (occurrence: US)
  Receive Date: 20121204
  Receipt Date: 20121204
  Transmission Date: 20130627
  Serious: Yes (Hospitalization)
  Sender: FDA-Public Use
  Company Number: US-MYLANLABS-2012S1024414

PATIENT
  Age: 80 Year
  Sex: Female

DRUGS (2)
  1. THIAMAZOLE [Suspect]
     Indication: HYPERTHYROIDISM
     Dosage: 10mg
     Route: 065
  2. ASPIRIN [Concomitant]
     Dosage: 81 mg
     Route: 065

REACTIONS (1)
  - Pancreatitis acute [Recovering/Resolving]
